FAERS Safety Report 4851939-4 (Version None)
Quarter: 2005Q4

REPORT INFORMATION
  Report Type: 
  Country: None (occurrence: None)
  Receive Date: 20051209
  Receipt Date: 20051130
  Transmission Date: 20060501
  Serious: Yes (Hospitalization)
  Sender: FDA-Public Use
  Company Number: 2005162928

PATIENT
  Age: 3 Month
  Sex: Female

DRUGS (2)
  1. EPANUTIN (PHENYTOIN SODIUM) [Suspect]
     Indication: EPILEPSY
     Dosage: (35 MG, INTRAVENOUS)
     Route: 042
     Dates: start: 20051014, end: 20051014
  2. EPANUTIN (PHENYTOIN SODIUM) [Suspect]
     Indication: STATUS EPILEPTICUS
     Dosage: (35 MG, INTRAVENOUS)
     Route: 042
     Dates: start: 20051014, end: 20051014

REACTIONS (8)
  - APPLICATION SITE OEDEMA [None]
  - DRUG SCREEN NEGATIVE [None]
  - EXTRAVASATION [None]
  - INCORRECT ROUTE OF DRUG ADMINISTRATION [None]
  - INJECTION SITE ERYTHEMA [None]
  - INJECTION SITE OEDEMA [None]
  - MEDICATION ERROR [None]
  - PROCEDURAL COMPLICATION [None]
